FAERS Safety Report 8302961-7 (Version None)
Quarter: 2012Q2

REPORT INFORMATION
  Report Type: 
  Country: None (occurrence: None)
  Receive Date: 20120420
  Receipt Date: 20120416
  Transmission Date: 20120825
  Serious: Yes (Death)
  Sender: FDA-Public Use
  Company Number: DE-PFIZER INC-2012094735

PATIENT
  Sex: Female

DRUGS (1)
  1. TORISEL [Suspect]

REACTIONS (1)
  - MUCOSAL INFLAMMATION [None]
